FAERS Safety Report 21587170 (Version 1)
Quarter: 2022Q4

REPORT INFORMATION
  Report Type: Spontaneous
  Country: US (occurrence: US)
  Receive Date: 20221114
  Receipt Date: 20221114
  Transmission Date: 20230112
  Serious: Yes (Other)
  Sender: FDA-Public Use
  Company Number: US-INGENUS PHARMACEUTICALS, LLC-2022INF000081

PATIENT
  Age: 3 Year
  Sex: Female

DRUGS (2)
  1. MELPHALAN HYDROCHLORIDE [Suspect]
     Active Substance: MELPHALAN HYDROCHLORIDE
     Indication: Retinoblastoma
     Dosage: 3.0 MG IN 30 ML
     Route: 013
  2. MELPHALAN HYDROCHLORIDE [Suspect]
     Active Substance: MELPHALAN HYDROCHLORIDE
     Dosage: 30 MICROGRAM/0.1 MLL

REACTIONS (4)
  - Macular degeneration [Unknown]
  - Visual acuity reduced [Unknown]
  - Toxicity to various agents [Unknown]
  - Product use in unapproved indication [Unknown]
